FAERS Safety Report 4631869-3 (Version None)
Quarter: 2005Q2

REPORT INFORMATION
  Report Type: 
  Country: None (occurrence: None)
  Receive Date: 20050330
  Receipt Date: 20040602
  Transmission Date: 20051028
  Serious: Yes (Hospitalization)
  Sender: FDA-Public Use
  Company Number: 139071USA

PATIENT
  Age: 12 Year
  Sex: Male

DRUGS (1)
  1. ETOPOSIDE [Suspect]
     Indication: CHEMOTHERAPY
     Dosage: 300 MG/M2 INTRAVENOUS (NOS)
     Route: 042

REACTIONS (3)
  - CHILLS [None]
  - HYPOTENSION [None]
  - PYREXIA [None]
